FAERS Safety Report 24723262 (Version 1)
Quarter: 2024Q4

REPORT INFORMATION
  Report Type: Spontaneous
  Country: HR (occurrence: HR)
  Receive Date: 20241211
  Receipt Date: 20241211
  Transmission Date: 20250114
  Serious: Yes (Disabling, Other)
  Sender: BAYER HEALTHCARE PHARMACEUTICALS INC.
  Company Number: None

PATIENT
  Age: 41 Year
  Sex: Male
  Weight: 77 kg

DRUGS (1)
  1. INTERFERON BETA-1B [Suspect]
     Active Substance: INTERFERON BETA-1B
     Indication: Relapsing-remitting multiple sclerosis
     Dosage: 8 MIU, QOD
     Route: 058
     Dates: start: 201111, end: 202405

REACTIONS (14)
  - Oligoarthritis [Recovering/Resolving]
  - Seronegative arthritis [Recovering/Resolving]
  - Arthritis reactive [Recovering/Resolving]
  - Skin necrosis [Recovered/Resolved with Sequelae]
  - Pyrexia [Recovered/Resolved]
  - Oropharyngeal pain [Unknown]
  - Pain in extremity [Unknown]
  - Peripheral swelling [Unknown]
  - Joint swelling [Unknown]
  - Arthralgia [Unknown]
  - Arthralgia [Unknown]
  - Joint swelling [Unknown]
  - Asthenia [Unknown]
  - Mobility decreased [Unknown]

NARRATIVE: CASE EVENT DATE: 20110101
